FAERS Safety Report 25351672 (Version 1)
Quarter: 2025Q2

REPORT INFORMATION
  Report Type: Spontaneous
  Country: IL (occurrence: IL)
  Receive Date: 20250523
  Receipt Date: 20250523
  Transmission Date: 20250716
  Serious: Yes (Life-Threatening)
  Sender: TAKEDA
  Company Number: IL-TAKEDA-2025TUS048144

PATIENT
  Age: 49 Year
  Sex: Female

DRUGS (1)
  1. KIOVIG [Suspect]
     Active Substance: HUMAN IMMUNOGLOBULIN G
     Indication: Product used for unknown indication

REACTIONS (5)
  - Blood pressure decreased [Unknown]
  - Troponin increased [Unknown]
  - Left ventricular dysfunction [Unknown]
  - Anaphylactic reaction [Unknown]
  - Myocardial infarction [Unknown]
